FAERS Safety Report 23158312 (Version 1)
Quarter: 2023Q4

REPORT INFORMATION
  Report Type: Spontaneous
  Country: US (occurrence: US)
  Receive Date: 20231108
  Receipt Date: 20231108
  Transmission Date: 20240109
  Serious: No
  Sender: FDA-Public Use
  Company Number: US-APOTEX-2023AP016056

PATIENT
  Age: 62 Year
  Sex: Male

DRUGS (6)
  1. BORTEZOMIB [Suspect]
     Active Substance: BORTEZOMIB
     Indication: Plasma cell myeloma
     Dosage: 1.3 MILLIGRAM/SQ. METER, ON DAYS 1, 8, AND 15  (THREE-WEEK TREATMENT CYCLE, WITH A ONE-WEEK REST PER
     Route: 058
  2. LENALIDOMIDE [Concomitant]
     Active Substance: LENALIDOMIDE
     Indication: Plasma cell myeloma
     Dosage: 25 MILLIGRAM, QD, THREE-WEEK TREATMENT CYCLE, WITH A ONE-WEEK REST PERIOD IN BETWEEN CYCLES
     Route: 065
  3. DEXAMETHASONE [Concomitant]
     Active Substance: DEXAMETHASONE
     Indication: Plasma cell myeloma
     Dosage: 40 MILLIGRAM, Q.WK.,THREE-WEEK TREATMENT CYCLE, WITH A ONE-WEEK REST PERIOD IN BETWEEN CYCLES
     Route: 065
  4. ASPIRIN [Concomitant]
     Active Substance: ASPIRIN
     Indication: Thrombosis prophylaxis
     Dosage: 81 MILLIGRAM, QD
     Route: 065
  5. ACYCLOVIR [Concomitant]
     Active Substance: ACYCLOVIR
     Indication: Herpes zoster
     Dosage: 400 MILLIGRAM, QD
     Route: 065
  6. ACYCLOVIR [Concomitant]
     Active Substance: ACYCLOVIR
     Indication: Prophylaxis

REACTIONS (2)
  - Superficial inflammatory dermatosis [Recovered/Resolved with Sequelae]
  - Injection site rash [Recovered/Resolved with Sequelae]
